FAERS Safety Report 4306807-3 (Version None)
Quarter: 2004Q1

REPORT INFORMATION
  Report Type: 
  Country: None (occurrence: None)
  Receive Date: 20040227
  Receipt Date: 20040225
  Transmission Date: 20041129
  Serious: Yes (Death)
  Sender: FDA-Public Use
  Company Number: JP-BRISTOL-MYERS SQUIBB COMPANY-12517116

PATIENT
  Age: 84 Year
  Sex: Female

DRUGS (1)
  1. VEPESID [Suspect]
     Indication: CERVIX CARCINOMA
     Route: 048
     Dates: start: 20031127

REACTIONS (1)
  - DEATH [None]
